FAERS Safety Report 8156796-9 (Version None)
Quarter: 2012Q1

REPORT INFORMATION
  Report Type: 
  Country: None (occurrence: None)
  Receive Date: 20120222
  Receipt Date: 20120214
  Transmission Date: 20120608
  Serious: Yes (Death, Other)
  Sender: FDA-Public Use
  Company Number: US-BAYER-200940074NA

PATIENT
  Age: 57 Year
  Sex: Male
  Weight: 86.168 kg

DRUGS (2)
  1. TRASYLOL [Suspect]
     Indication: CARDIAC OPERATION
     Dosage: 200ML, 2 VIALS
     Route: 042
     Dates: start: 20050824
  2. TRASYLOL [Suspect]
     Dosage: 600 ML
     Route: 042
     Dates: start: 20050824

REACTIONS (13)
  - MULTI-ORGAN FAILURE [None]
  - PAIN [None]
  - RENAL INJURY [None]
  - RENAL FAILURE [None]
  - STRESS [None]
  - INJURY [None]
  - ANXIETY [None]
  - UNEVALUABLE EVENT [None]
  - FEAR [None]
  - DEATH [None]
  - ANHEDONIA [None]
  - EMOTIONAL DISTRESS [None]
  - RENAL IMPAIRMENT [None]
